FAERS Safety Report 5972163-8 (Version None)
Quarter: 2008Q4

REPORT INFORMATION
  Report Type: 
  Country: None (occurrence: None)
  Receive Date: 20081201
  Receipt Date: 20080903
  Transmission Date: 20090506
  Serious: No
  Sender: FDA-Public Use
  Company Number: US-TEVA-176945USA

PATIENT
  Sex: Male

DRUGS (2)
  1. SALBUTAMOL SULFATE INHALATION, 0.09 MG [Suspect]
     Indication: ASTHMA
     Dosage: 2 PUFFS BID
     Route: 055
     Dates: start: 20080903
  2. TIOTROPIUM BROMIDE [Concomitant]

REACTIONS (5)
  - CHILLS [None]
  - FLUSHING [None]
  - TACHYCARDIA [None]
  - TREMOR [None]
  - VOMITING [None]
